FAERS Safety Report 22668528 (Version 6)
Quarter: 2023Q4

REPORT INFORMATION
  Report Type: Report from Study
  Country: CA (occurrence: CA)
  Receive Date: 20230704
  Receipt Date: 20231221
  Transmission Date: 20240110
  Serious: Yes (Other)
  Sender: FDA-Public Use
  Company Number: CA-JNJFOC-20230506715

PATIENT
  Age: 17 Year
  Sex: Male

DRUGS (3)
  1. REMICADE [Suspect]
     Active Substance: INFLIXIMAB
     Indication: Crohn^s disease
     Dosage: EXPIRY DATE: 30-SEP-2025,28-FEB-2026
     Route: 041
     Dates: start: 20220308
  2. REMICADE [Suspect]
     Active Substance: INFLIXIMAB
     Route: 041
  3. CODEINE [Concomitant]
     Active Substance: CODEINE
     Indication: Product used for unknown indication
     Route: 065
     Dates: start: 2022

REACTIONS (10)
  - Drug dependence [Unknown]
  - Refusal of treatment by patient [Unknown]
  - Decreased appetite [Recovering/Resolving]
  - Depressed mood [Unknown]
  - Respiratory disorder [Recovering/Resolving]
  - Constipation [Not Recovered/Not Resolved]
  - Abdominal pain [Recovering/Resolving]
  - Nausea [Unknown]
  - Fatigue [Unknown]
  - Inappropriate schedule of product administration [Unknown]

NARRATIVE: CASE EVENT DATE: 20230101
